FAERS Safety Report 7772932-8 (Version None)
Quarter: 2011Q3

REPORT INFORMATION
  Report Type: 
  Country: None (occurrence: None)
  Receive Date: 20110922
  Receipt Date: 20100720
  Transmission Date: 20111222
  Serious: No
  Sender: FDA-Public Use
  Company Number: US-ASTRAZENECA-2010SE33705

PATIENT
  Age: 46 Year
  Sex: Female
  Weight: 60.8 kg

DRUGS (6)
  1. SEROQUEL [Suspect]
     Route: 048
  2. KLONOPIN [Concomitant]
  3. DIOVAN [Concomitant]
  4. NEXIUM [Concomitant]
     Route: 048
  5. SEROQUEL [Suspect]
     Indication: BIPOLAR DISORDER
     Route: 048
     Dates: start: 20080101
  6. SYMBALTA [Concomitant]

REACTIONS (2)
  - LETHARGY [None]
  - WRONG TECHNIQUE IN DRUG USAGE PROCESS [None]
